FAERS Safety Report 19229743 (Version 1)
Quarter: 2021Q2

REPORT INFORMATION
  Report Type: Spontaneous
  Country: DK (occurrence: DK)
  Receive Date: 20210506
  Receipt Date: 20210506
  Transmission Date: 20210717
  Serious: Yes (Death, Other)
  Sender: FDA-Public Use
  Company Number: DK-GILEAD-2021-0528553

PATIENT
  Age: 73 Year
  Sex: Male

DRUGS (10)
  1. FUROSEMIDE. [Concomitant]
     Active Substance: FUROSEMIDE
     Indication: DIURETIC THERAPY
     Dates: start: 20210330
  2. FORXIGA [Concomitant]
     Active Substance: DAPAGLIFLOZIN
     Indication: TYPE 2 DIABETES MELLITUS
     Dates: start: 20210322
  3. PANTOPRAZOLE [Concomitant]
     Active Substance: PANTOPRAZOLE
     Indication: GASTROOESOPHAGEAL REFLUX DISEASE
     Dates: start: 20160609
  4. PERMADOZE [Concomitant]
     Indication: VITAMIN B12 DEFICIENCY
     Dates: start: 20180626
  5. KALIUM CHLORID [Concomitant]
     Active Substance: POTASSIUM CHLORIDE
     Indication: BLOOD POTASSIUM DECREASED
     Dates: start: 20210331
  6. TRAJENTA [Concomitant]
     Active Substance: LINAGLIPTIN
     Indication: TYPE 2 DIABETES MELLITUS
     Dates: start: 20210315
  7. VEKLURY [Suspect]
     Active Substance: REMDESIVIR
     Indication: COVID-19
     Dosage: DOSAGE: EXACT DOSAGE SCHEDULE UNKNOWN, STRENGTH: 100 MG
     Route: 042
     Dates: start: 20210327, end: 20210331
  8. METFORMIN [Concomitant]
     Active Substance: METFORMIN HYDROCHLORIDE
     Indication: TYPE 2 DIABETES MELLITUS
     Dates: start: 20160802
  9. LOSARTANKALIUM/HYDROCHLOORTHIAZIDE [Concomitant]
     Indication: HYPERTENSION
     Dates: start: 20210322
  10. FOLIMET [Concomitant]
     Active Substance: FOLIC ACID
     Indication: VITAMIN SUPPLEMENTATION
     Dates: start: 20210329

REACTIONS (4)
  - Cardiac arrest [Fatal]
  - COVID-19 [Fatal]
  - Cardiac failure [Fatal]
  - Heart rate irregular [Fatal]

NARRATIVE: CASE EVENT DATE: 202104
